FAERS Safety Report 5359933-4 (Version None)
Quarter: 2007Q2

REPORT INFORMATION
  Report Type: 
  Country: None (occurrence: None)
  Receive Date: 20070530
  Receipt Date: 20070202
  Transmission Date: 20071010
  Serious: No
  Sender: FDA-Public Use
  Company Number: 2007PV029475

PATIENT
  Age: 74 Year
  Sex: Male

DRUGS (4)
  1. BYETTA [Suspect]
     Indication: DIABETES MELLITUS NON-INSULIN-DEPENDENT
     Dosage: 5 MCG; BID; SC
     Route: 058
  2. HUMULIN N [Concomitant]
  3. HUMALOG [Concomitant]
  4. ACTOS [Concomitant]

REACTIONS (3)
  - DISCOMFORT [None]
  - FATIGUE [None]
  - MOOD SWINGS [None]
